FAERS Safety Report 15452324 (Version 1)
Quarter: 2018Q4

REPORT INFORMATION
  Report Type: Spontaneous
  Country: US (occurrence: US)
  Receive Date: 20181001
  Receipt Date: 20181001
  Transmission Date: 20190204
  Serious: Yes (Hospitalization)
  Sender: FDA-Public Use
  Company Number: US-MOBERGPHARMA-2018-US-016062

PATIENT
  Age: 77 Year
  Sex: Male
  Weight: 99.79 kg

DRUGS (4)
  1. DERMOPLAST PAIN RELIEVING [Suspect]
     Active Substance: BENZOCAINE\MENTHOL
     Indication: SUNBURN
     Route: 061
     Dates: start: 20180903, end: 20180903
  2. WARFARIN [Concomitant]
     Active Substance: WARFARIN
  3. DONEPEZIL. [Concomitant]
     Active Substance: DONEPEZIL
  4. NORCO [Concomitant]
     Active Substance: ACETAMINOPHEN\HYDROCODONE BITARTRATE

REACTIONS (4)
  - Blood glucose decreased [Recovered/Resolved]
  - Eye swelling [Recovered/Resolved]
  - Swelling face [Recovered/Resolved]
  - Mouth swelling [Recovered/Resolved]

NARRATIVE: CASE EVENT DATE: 20180903
